FAERS Safety Report 6024662-0 (Version None)
Quarter: 2008Q4

REPORT INFORMATION
  Report Type: 
  Country: None (occurrence: None)
  Receive Date: 20081230
  Receipt Date: 20081230
  Transmission Date: 20090506
  Serious: Yes (Death)
  Sender: FDA-Public Use
  Company Number: None

PATIENT
  Age: 46 Year

DRUGS (5)
  1. CYMBALTA [Suspect]
     Indication: ANXIETY
     Dates: start: 20080401
  2. CYMBALTA [Suspect]
     Indication: ANXIETY
     Dates: start: 20080501
  3. CYMBALTA [Suspect]
     Indication: ANXIETY
     Dates: start: 20080601
  4. LEXAPRO [Suspect]
     Indication: ANXIETY
     Dates: start: 20080704
  5. EFFEXOR XR [Suspect]
     Dosage: 37.5 - 75 MG.

REACTIONS (1)
  - DEATH [None]
